FAERS Safety Report 18209432 (Version 2)
Quarter: 2020Q3

REPORT INFORMATION
  Report Type: Report from Study
  Country: US (occurrence: US)
  Receive Date: 20200828
  Receipt Date: 20200831
  Transmission Date: 20201103
  Serious: Yes (Death, Other)
  Sender: FDA-Public Use
  Company Number: US-ASTRAZENECA-2020SF08272

PATIENT
  Age: 24570 Day
  Sex: Female

DRUGS (1)
  1. LYNPARZA [Suspect]
     Active Substance: OLAPARIB
     Indication: LUNG NEOPLASM MALIGNANT
     Route: 048
     Dates: start: 20191210, end: 20200615

REACTIONS (8)
  - Vascular rupture [Not Recovered/Not Resolved]
  - Mouth haemorrhage [Not Recovered/Not Resolved]
  - Off label use [Recovered/Resolved]
  - Cough [Not Recovered/Not Resolved]
  - Malignant neoplasm progression [Not Recovered/Not Resolved]
  - Death [Fatal]
  - Neoplasm progression [Not Recovered/Not Resolved]
  - Cluster headache [Unknown]

NARRATIVE: CASE EVENT DATE: 20191210
